FAERS Safety Report 24714671 (Version 3)
Quarter: 2024Q4

REPORT INFORMATION
  Report Type: Spontaneous
  Country: US (occurrence: US)
  Receive Date: 20241209
  Receipt Date: 20241230
  Transmission Date: 20250114
  Serious: Yes (Other)
  Sender: ALVOGEN
  Company Number: US-ALVOGEN-2024095884

PATIENT
  Sex: Male

DRUGS (1)
  1. LISDEXAMFETAMINE [Suspect]
     Active Substance: LISDEXAMFETAMINE
     Indication: Attention deficit hyperactivity disorder
     Dosage: STRENGTH: 30MG; EXPIRATION DATE: JUN-2026?DISPENSED ON 27-SEP-24?DATE OF MANUFACTURE: 09-JUL-2024

REACTIONS (4)
  - Suicidal ideation [Unknown]
  - Incorrect dose administered [Unknown]
  - Product physical issue [Unknown]
  - Anxiety [Unknown]

NARRATIVE: CASE EVENT DATE: 20240101
